FAERS Safety Report 16873087 (Version 1)
Quarter: 2019Q4

REPORT INFORMATION
  Report Type: Spontaneous
  Country: US (occurrence: US)
  Receive Date: 20191001
  Receipt Date: 20191001
  Transmission Date: 20200122
  Serious: Yes (Hospitalization)
  Sender: FDA-Public Use
  Company Number: US-VIRTUS PHARMACEUTICALS, LLC-2019VTS00057

PATIENT
  Age: 58 Year
  Sex: Female

DRUGS (4)
  1. ALBUTEROL/IPRATROPIUM [Suspect]
     Active Substance: ALBUTEROL\IPRATROPIUM
     Indication: ASTHMA
  2. ALBUTEROL. [Suspect]
     Active Substance: ALBUTEROL
     Indication: ORGANISING PNEUMONIA
     Dosage: UNK, 12X/DAY (EVERY 2 HOURS AS NEEDED)
  3. ALBUTEROL/IPRATROPIUM [Suspect]
     Active Substance: ALBUTEROL\IPRATROPIUM
     Indication: ORGANISING PNEUMONIA
     Dosage: UNK, 3X/DAY (EVERY 8 HOURS)
  4. ALBUTEROL. [Suspect]
     Active Substance: ALBUTEROL
     Indication: ASTHMA

REACTIONS (1)
  - Lactic acidosis [Recovered/Resolved]
